FAERS Safety Report 7824796-1 (Version None)
Quarter: 2011Q4

REPORT INFORMATION
  Report Type: 
  Country: None (occurrence: None)
  Receive Date: 20111019
  Receipt Date: 20110222
  Transmission Date: 20120403
  Serious: Yes (Other)
  Sender: FDA-Public Use
  Company Number: US-BRISTOL-MYERS SQUIBB COMPANY-15512221

PATIENT
  Age: 52 Year
  Sex: Female

DRUGS (2)
  1. AVALIDE [Suspect]
     Indication: HYPERTENSION
     Dosage: AVALIDE 300/25MG ONCE A DAY FOR 4-5 YEARS
     Route: 048
     Dates: start: 20050101
  2. PROPRANOLOL [Concomitant]

REACTIONS (4)
  - INSOMNIA [None]
  - DRUG INEFFECTIVE [None]
  - OEDEMA [None]
  - MICTURITION FREQUENCY DECREASED [None]
